FAERS Safety Report 24254168 (Version 1)
Quarter: 2024Q3

REPORT INFORMATION
  Report Type: Spontaneous
  Country: GB (occurrence: GB)
  Receive Date: 20240827
  Receipt Date: 20240827
  Transmission Date: 20241017
  Serious: Yes (Other)
  Sender: VERTEX
  Company Number: None

PATIENT
  Age: 3 Year
  Sex: Male

DRUGS (9)
  1. ELEXACAFTOR\IVACAFTOR\TEZACAFTOR [Suspect]
     Active Substance: ELEXACAFTOR\IVACAFTOR\TEZACAFTOR
     Indication: Cystic fibrosis
     Dosage: KAFTRIO GRANULES (IVACAFTOR 75MG/ TEZACAFTOR 50MG/ ELEXACAFTOR 100MG) -1 SACHET IN THE MORNING
     Route: 048
     Dates: start: 20240319, end: 2024
  2. ELEXACAFTOR\IVACAFTOR\TEZACAFTOR [Suspect]
     Active Substance: ELEXACAFTOR\IVACAFTOR\TEZACAFTOR
     Dosage: 1 SACHET IN THE EVENING
     Route: 048
     Dates: start: 2024, end: 20240716
  3. KALYDECO [Suspect]
     Active Substance: IVACAFTOR
     Indication: Cystic fibrosis
     Dosage: 1 SACHET IN THE EVENING
     Route: 048
     Dates: start: 20240319, end: 2024
  4. KALYDECO [Suspect]
     Active Substance: IVACAFTOR
     Dosage: 1 SACHET IN THE AM
     Route: 048
     Dates: start: 2024, end: 20240716
  5. COLOMYCIN [Concomitant]
     Dosage: UNK
  6. FLUCLOXACILLIN [Concomitant]
     Active Substance: FLUCLOXACILLIN
     Dosage: UNK
  7. LANSOPRAZOLE [Concomitant]
     Active Substance: LANSOPRAZOLE
     Dosage: UNK
  8. CREON [Concomitant]
     Active Substance: PANCRELIPASE AMYLASE\PANCRELIPASE LIPASE\PANCRELIPASE PROTEASE
     Dosage: UNK
  9. SODIUM CHLORIDE [Concomitant]
     Active Substance: SODIUM CHLORIDE
     Dosage: UNK

REACTIONS (5)
  - Mood swings [Recovered/Resolved]
  - Aggression [Recovered/Resolved]
  - Separation anxiety disorder [Recovered/Resolved]
  - Abnormal behaviour [Recovered/Resolved]
  - Sleep terror [Recovered/Resolved]

NARRATIVE: CASE EVENT DATE: 20240301
